FAERS Safety Report 7539129-8 (Version None)
Quarter: 2011Q2

REPORT INFORMATION
  Report Type: 
  Country: None (occurrence: None)
  Receive Date: 20110610
  Receipt Date: 20020207
  Transmission Date: 20111010
  Serious: Yes (Other)
  Sender: FDA-Public Use
  Company Number: PHBS2002CA01942

PATIENT
  Sex: Female

DRUGS (9)
  1. CLOZAPINE [Suspect]
     Indication: ABNORMAL BEHAVIOUR
     Route: 048
     Dates: start: 20010604
  2. CARDIZEM [Concomitant]
     Dosage: 240 MG/D
  3. ENALAPRIL MALEATE [Concomitant]
  4. PULMICORT [Concomitant]
  5. ASPIRIN [Concomitant]
     Dosage: 81 MG, QD
  6. VALPROIC ACID [Concomitant]
     Dosage: 875 MG/D
  7. CLOZAPINE [Suspect]
     Dosage: 112.5 MG/D
     Route: 048
     Dates: start: 20020202, end: 20020206
  8. LEVOTHYROXINE SODIUM [Concomitant]
  9. HYDROCHLOROTHIAZIDE [Concomitant]

REACTIONS (3)
  - RENAL DISORDER [None]
  - BLOOD UREA INCREASED [None]
  - BLOOD CREATINE INCREASED [None]
